FAERS Safety Report 20841774 (Version 3)
Quarter: 2023Q2

REPORT INFORMATION
  Report Type: Report from Study
  Country: GB (occurrence: GB)
  Receive Date: 20220518
  Receipt Date: 20230419
  Transmission Date: 20230722
  Serious: Yes (Other)
  Sender: FDA-Public Use
  Company Number: GB-NOVARTISPH-NVSC2022GB047051

PATIENT
  Age: 54 Year
  Sex: Female

DRUGS (3)
  1. MAYZENT [Suspect]
     Active Substance: SIPONIMOD
     Indication: Multiple sclerosis
     Dosage: 2 MG, QD
     Route: 048
     Dates: start: 20211108
  2. MAYZENT [Suspect]
     Active Substance: SIPONIMOD
     Indication: Secondary progressive multiple sclerosis
     Dosage: 2 MG, QD
     Route: 048
  3. MAYZENT [Suspect]
     Active Substance: SIPONIMOD
     Dosage: UNK, QD ( RE-TITRATED)
     Route: 048
     Dates: start: 20220929

REACTIONS (12)
  - Haematuria [Unknown]
  - Cholangitis [Unknown]
  - Syncope [Unknown]
  - Infection [Unknown]
  - Headache [Unknown]
  - Malaise [Unknown]
  - Urinary tract infection [Unknown]
  - Abdominal pain [Unknown]
  - Vomiting [Unknown]
  - Liver function test abnormal [Unknown]
  - Blood iron decreased [Unknown]
  - Hypertension [Unknown]

NARRATIVE: CASE EVENT DATE: 20220201
